FAERS Safety Report 9802338 (Version 1)
Quarter: 2014Q1

REPORT INFORMATION
  Report Type: Report from Study
  Country: US (occurrence: US)
  Receive Date: 20140107
  Receipt Date: 20140107
  Transmission Date: 20141002
  Serious: Yes (Other)
  Sender: FDA-Public Use
  Company Number: US-US-EMD SERONO, INC.-7260839

PATIENT
  Sex: Female

DRUGS (1)
  1. REBIF [Suspect]
     Indication: PRODUCT USED FOR UNKNOWN INDICATION
     Route: 058
     Dates: start: 20030212, end: 200704

REACTIONS (5)
  - Lymphadenopathy [Unknown]
  - Lymphadenopathy [Unknown]
  - Radiculitis [Unknown]
  - Injection site atrophy [Not Recovered/Not Resolved]
  - Injection site pain [Unknown]
